FAERS Safety Report 4687642-3 (Version None)
Quarter: 2005Q2

REPORT INFORMATION
  Report Type: 
  Country: None (occurrence: None)
  Receive Date: 20050608
  Receipt Date: 20050608
  Transmission Date: 20051028
  Serious: Yes (Life-Threatening)
  Sender: FDA-Public Use
  Company Number: None

PATIENT
  Age: 33 Year
  Sex: Male

DRUGS (16)
  1. IRON DEXTRAN [Suspect]
     Indication: IRON DEFICIENCY ANAEMIA
     Dosage: 25MG    ONCE    INTRAVENOU
     Route: 042
     Dates: start: 20050118, end: 20050118
  2. CEFEPIME [Concomitant]
  3. TOBRAMYCIN [Concomitant]
  4. ORPHENADRINE [Concomitant]
  5. METRONIDAZOLE [Concomitant]
  6. LINEZOLID [Concomitant]
  7. BACLOFEN [Concomitant]
  8. ESCITALOPRAM OXALATE [Concomitant]
  9. TRAZODONE [Concomitant]
  10. BEELITH [Concomitant]
  11. METOPROLOL [Concomitant]
  12. RANITIDINE [Concomitant]
  13. ASCORBIC ACID [Concomitant]
  14. GABAPENTIN [Concomitant]
  15. LIDODERM [Concomitant]
  16. ALENDRONATE [Concomitant]

REACTIONS (3)
  - HYPERHIDROSIS [None]
  - HYPOTENSION [None]
  - INFUSION RELATED REACTION [None]
